FAERS Safety Report 4807506-1 (Version None)
Quarter: 2005Q4

REPORT INFORMATION
  Report Type: 
  Country: None (occurrence: None)
  Receive Date: 20051019
  Receipt Date: 20051007
  Transmission Date: 20060501
  Serious: Yes (Death, Life-Threatening, Hospitalization)
  Sender: FDA-Public Use
  Company Number: 2005EU000289

PATIENT
  Age: 34 Year
  Sex: Female

DRUGS (9)
  1. FK506 (TACROLIMUS) CAPSULE [Suspect]
     Indication: GRAFT VERSUS HOST DISEASE
     Dosage: 1.00 MG UID/QD ORAL
     Route: 048
     Dates: start: 20040401
  2. POSACONAZOLE [Suspect]
     Indication: FUNGAL INFECTION
     Dosage: 5.00 ML QID ORAL
     Route: 048
     Dates: start: 20040601
  3. PREDNISOLONE [Suspect]
     Indication: GRAFT VERSUS HOST DISEASE
     Dosage: 7.50 MG ORAL
     Route: 048
     Dates: start: 20040401
  4. ENTOCORT (BUDESONIDE) [Suspect]
     Indication: GRAFT VERSUS HOST DISEASE
     Dosage: 3.00 MG ORAL
     Route: 048
     Dates: start: 20040401
  5. PANTOPRAZOLE SODIUM [Concomitant]
  6. COTRIM [Concomitant]
  7. VALGANCICLOVIR (VALGANCICLOVIR) [Concomitant]
  8. LORAZEPAM [Concomitant]
  9. NEUPOGEN [Concomitant]

REACTIONS (21)
  - ARTHRALGIA [None]
  - ARTHRITIS [None]
  - ASPERGILLOSIS [None]
  - ASTHENIA [None]
  - BACTERIAL SEPSIS [None]
  - CONDITION AGGRAVATED [None]
  - COUGH [None]
  - DYSPNOEA [None]
  - ENCEPHALITIS ENTEROVIRAL [None]
  - FUNGAL INFECTION [None]
  - GRAFT VERSUS HOST DISEASE [None]
  - HEADACHE [None]
  - HYPOTENSION [None]
  - JOINT SWELLING [None]
  - LUNG INFILTRATION [None]
  - NAUSEA [None]
  - PO2 DECREASED [None]
  - PYREXIA [None]
  - RESPIRATORY FAILURE [None]
  - SPUTUM RETENTION [None]
  - SUFFOCATION FEELING [None]
